FAERS Safety Report 8623673-6 (Version None)
Quarter: 2012Q3

REPORT INFORMATION
  Report Type: 
  Country: None (occurrence: None)
  Receive Date: 20120824
  Receipt Date: 20120824
  Transmission Date: 20120928
  Serious: Yes (Life-Threatening, Hospitalization, Disabling)
  Sender: FDA-Public Use
  Company Number: None

PATIENT
  Age: 45 Year
  Sex: Female
  Weight: 108.8633 kg

DRUGS (1)
  1. DICLOFENAC POTASSIUM [Suspect]
     Indication: MUSCULOSKELETAL PAIN
     Dosage: 1 DOSE PER DAY, ONCE A DAY, PO
     Route: 048
     Dates: start: 20111018, end: 20111129

REACTIONS (1)
  - HEPATIC FAILURE [None]
